FAERS Safety Report 16858048 (Version 1)
Quarter: 2019Q3

REPORT INFORMATION
  Report Type: Report from Study
  Country: FR (occurrence: FR)
  Receive Date: 20190926
  Receipt Date: 20190926
  Transmission Date: 20191005
  Serious: Yes (Hospitalization)
  Sender: FDA-Public Use
  Company Number: FR-EISAI MEDICAL RESEARCH-EC-2019-062580

PATIENT
  Age: 72 Year
  Sex: Male
  Weight: 105.5 kg

DRUGS (15)
  1. LENVATINIB [Suspect]
     Active Substance: LENVATINIB
     Indication: HEPATOCELLULAR CARCINOMA
     Route: 048
     Dates: start: 20190419, end: 20190911
  2. PEMBROLIZUMAB. [Suspect]
     Active Substance: PEMBROLIZUMAB
     Indication: HEPATOCELLULAR CARCINOMA
     Dosage: BLINDED
     Route: 041
     Dates: start: 20190419, end: 20190822
  3. LANSOYL [Concomitant]
     Active Substance: MINERAL OIL
     Dates: start: 20190712
  4. TRAMADOL HYDROCHLORIDE. [Concomitant]
     Active Substance: TRAMADOL HYDROCHLORIDE
     Dates: start: 20190429
  5. ACETAMINOPHEN. [Concomitant]
     Active Substance: ACETAMINOPHEN
     Dates: start: 20190712
  6. DIAMICRON [Concomitant]
     Active Substance: GLICLAZIDE
     Dates: start: 201201
  7. EFFIDIA [Concomitant]
     Dates: start: 20190715
  8. DERMOVAL [Concomitant]
     Dates: start: 20190715
  9. SMECTA [Concomitant]
     Active Substance: MONTMORILLONITE
     Dates: start: 20190523
  10. POLYETHYLENE GLYCOL [Concomitant]
     Active Substance: POLYETHYLENE GLYCOLS
     Dates: start: 20190709
  11. METOCLOPRAMIDE. [Concomitant]
     Active Substance: METOCLOPRAMIDE
     Dates: start: 20190828
  12. PEMBROLIZUMAB. [Suspect]
     Active Substance: PEMBROLIZUMAB
     Dosage: BLINDED
     Route: 041
     Dates: start: 20190912, end: 20190912
  13. METFORMIN [Concomitant]
     Active Substance: METFORMIN HYDROCHLORIDE
     Dates: start: 20190429
  14. IRBESARTAN. [Concomitant]
     Active Substance: IRBESARTAN
     Dates: start: 20190823
  15. UREA CREAM [Concomitant]
     Active Substance: UREA
     Dates: start: 20190712

REACTIONS (1)
  - Skin ulcer [Not Recovered/Not Resolved]

NARRATIVE: CASE EVENT DATE: 20190919
